FAERS Safety Report 8803008 (Version 1)
Quarter: 2012Q4

REPORT INFORMATION
  Report Type: 
  Country: US (occurrence: US)
  Receive Date: 20120924
  Receipt Date: 20120924
  Transmission Date: 20130627
  Serious: Yes (Hospitalization)
  Sender: FDA-Public Use
  Company Number: US-BAYER-2012-097422

PATIENT
  Age: 47 Year
  Sex: Female
  Weight: 97.96 kg

DRUGS (10)
  1. YAZ [Suspect]
     Indication: PREMENSTRUAL SYNDROME
     Dosage: UNK
     Dates: start: 20100320, end: 20110227
  2. YAZ [Suspect]
     Indication: PREMENSTRUAL SYNDROME
  3. CELEBREX [Concomitant]
     Indication: NECK PAIN
     Dosage: UNK
     Dates: start: 2008, end: 20110227
  4. OMEPRAZOLE [Concomitant]
     Indication: GASTROOESOPHAGEAL REFLUX DISEASE
     Dosage: 20 mg, daily
     Dates: start: 2008
  5. CYCLOBENZAPRINE [Concomitant]
     Dosage: 10 mg, every 8 hours PRN
  6. FISH OIL [Concomitant]
     Dosage: every day
  7. MULTIVITAMIN [Concomitant]
     Dosage: Every day
  8. MAGNESIUM [Concomitant]
     Dosage: Every day
     Route: 048
  9. VITAMIN B COMPLEX [Concomitant]
  10. OXYCONTIN [Concomitant]
     Dosage: 10 mg, every 12 hours

REACTIONS (6)
  - Pulmonary embolism [None]
  - Deep vein thrombosis [None]
  - Anxiety [None]
  - Fear [None]
  - Pain in extremity [None]
  - Musculoskeletal stiffness [None]
